FAERS Safety Report 15347913 (Version 3)
Quarter: 2018Q4

REPORT INFORMATION
  Report Type: Spontaneous
  Country: JP (occurrence: JP)
  Receive Date: 20180904
  Receipt Date: 20181203
  Transmission Date: 20190204
  Serious: Yes (Hospitalization, Other)
  Sender: FDA-Public Use
  Company Number: JP-BAYER-2018-158839

PATIENT
  Age: 67 Year
  Sex: Male

DRUGS (5)
  1. CANDESARTAN. [Concomitant]
     Active Substance: CANDESARTAN
  2. LYRICA [Concomitant]
     Active Substance: PREGABALIN
  3. STIVARGA [Suspect]
     Active Substance: REGORAFENIB
     Indication: COLORECTAL CANCER
     Dosage: 160 MG, QD
     Route: 048
     Dates: start: 20180119, end: 20180627
  4. CALBLOCK [Concomitant]
     Active Substance: AZELNIDIPINE
  5. CELECOXIB. [Concomitant]
     Active Substance: CELECOXIB

REACTIONS (5)
  - Hypercoagulation [Recovered/Resolved]
  - Trousseau^s syndrome [Recovered/Resolved]
  - Hypothyroidism [Recovered/Resolved]
  - Colorectal cancer [None]
  - Lacunar infarction [Recovered/Resolved]

NARRATIVE: CASE EVENT DATE: 20180704
